FAERS Safety Report 26038604 (Version 1)
Quarter: 2025Q4

REPORT INFORMATION
  Report Type: Spontaneous
  Country: US (occurrence: US)
  Receive Date: 20251113
  Receipt Date: 20251113
  Transmission Date: 20260117
  Serious: No
  Sender: OPTINOSE INC
  Company Number: US-OPTINOSE US, INC.-2025OPT000189

PATIENT

DRUGS (1)
  1. XHANCE [Suspect]
     Active Substance: FLUTICASONE PROPIONATE
     Indication: Chronic rhinosinusitis with nasal polyps
     Dosage: 186 MICROGRAM (1 SPRAY PER NOSTRIL), BID
     Route: 045
     Dates: start: 20250805, end: 20250810

REACTIONS (2)
  - Oral fungal infection [Unknown]
  - Lip disorder [Unknown]
